FAERS Safety Report 4842845-X (Version None)
Quarter: 2005Q4

REPORT INFORMATION
  Report Type: 
  Country: None (occurrence: None)
  Receive Date: 20051129
  Receipt Date: 20051114
  Transmission Date: 20060501
  Serious: Yes (Hospitalization)
  Sender: FDA-Public Use
  Company Number: JP-2005-018754

PATIENT
  Age: 56 Year
  Sex: Female
  Weight: 51 kg

DRUGS (6)
  1. BETASERON [Suspect]
     Indication: SECONDARY PROGRESSIVE MULTIPLE SCLEROSIS
     Dosage: 8 MIU, EVERY 2D, SUBCUTANEOUS
     Route: 058
     Dates: start: 20050417, end: 20050617
  2. PREDONINE [Concomitant]
  3. TEGRETOL [Concomitant]
  4. TRYPTANOL [Concomitant]
  5. FAMOTIDINE [Concomitant]
  6. RISEDRONATE SODIUM [Concomitant]

REACTIONS (7)
  - BED REST [None]
  - HEPATIC FUNCTION ABNORMAL [None]
  - HEPATITIS FULMINANT [None]
  - INCONTINENCE [None]
  - LYMPHOCYTE COUNT ABNORMAL [None]
  - PROTHROMBIN LEVEL DECREASED [None]
  - PYELONEPHRITIS [None]
